FAERS Safety Report 15211502 (Version 1)
Quarter: 2018Q3

REPORT INFORMATION
  Report Type: Spontaneous
  Country: US (occurrence: US)
  Receive Date: 20180702
  Receipt Date: 20180702
  Transmission Date: 20181010
  Serious: No
  Sender: FDA-Public Use
  Company Number: None

PATIENT
  Age: 62 Year
  Sex: Male
  Weight: 92.25 kg

DRUGS (1)
  1. ATORVASTATIN CALCIUM TABLETS 40 MG [Suspect]
     Active Substance: ATORVASTATIN CALCIUM
     Indication: BLOOD CHOLESTEROL INCREASED
     Dosage: ?          QUANTITY:1 TABLET(S);?
     Route: 048
     Dates: start: 20180329, end: 20180630

REACTIONS (6)
  - Product substitution issue [None]
  - Fatigue [None]
  - Crying [None]
  - Anxiety [None]
  - Disorientation [None]
  - Depression [None]

NARRATIVE: CASE EVENT DATE: 20180630
